FAERS Safety Report 7199273-4 (Version None)
Quarter: 2010Q4

REPORT INFORMATION
  Report Type: 
  Country: None (occurrence: None)
  Receive Date: 20101228
  Receipt Date: 20101217
  Transmission Date: 20110411
  Serious: Yes (Other)
  Sender: FDA-Public Use
  Company Number: GB-PFIZER INC-2010174323

PATIENT

DRUGS (1)
  1. SOLU-MEDRONE [Suspect]
     Indication: MUSCLE SPASMS
     Dosage: 1 G, UNK
     Route: 042

REACTIONS (3)
  - FATIGUE [None]
  - INCORRECT DRUG ADMINISTRATION RATE [None]
  - MUSCLE SPASMS [None]
